FAERS Safety Report 17629117 (Version 1)
Quarter: 2020Q2

REPORT INFORMATION
  Report Type: Spontaneous
  Country: US (occurrence: US)
  Receive Date: 20200406
  Receipt Date: 20200406
  Transmission Date: 20200713
  Serious: No
  Sender: FDA-Public Use
  Company Number: US-ALLERGAN-1948963US

PATIENT
  Sex: Male

DRUGS (1)
  1. DELZICOL [Suspect]
     Active Substance: MESALAMINE
     Indication: COLITIS ULCERATIVE
     Dosage: 400 MG, UNKNOWN

REACTIONS (4)
  - Product colour issue [Unknown]
  - Product size issue [Unknown]
  - Product administration interrupted [Unknown]
  - Product physical issue [Unknown]
